FAERS Safety Report 5422281-8 (Version None)
Quarter: 2007Q3

REPORT INFORMATION
  Report Type: 
  Country: None (occurrence: None)
  Receive Date: 20070820
  Receipt Date: 20070820
  Transmission Date: 20080115
  Serious: Yes (Disabling)
  Sender: FDA-Public Use
  Company Number: None

PATIENT
  Age: 52 Year
  Sex: Female
  Weight: 74.3899 kg

DRUGS (1)
  1. PEPCID AC [Suspect]
     Indication: GASTRIC ULCER
     Dosage: 10MG. GELCAP ONLY TOOK 1 PO
     Route: 048
     Dates: start: 20070807, end: 20070807

REACTIONS (4)
  - ABDOMINAL PAIN UPPER [None]
  - COMPUTERISED TOMOGRAM ABDOMEN ABNORMAL [None]
  - INFLAMMATION [None]
  - WEIGHT DECREASED [None]
